FAERS Safety Report 18291434 (Version 1)
Quarter: 2020Q3

REPORT INFORMATION
  Report Type: Spontaneous
  Country: US (occurrence: US)
  Receive Date: 20200921
  Receipt Date: 20200921
  Transmission Date: 20201103
  Serious: No
  Sender: FDA-Public Use
  Company Number: US-ASTRAZENECA-2020SF16294

PATIENT
  Sex: Male

DRUGS (1)
  1. SYMBICORT [Suspect]
     Active Substance: BUDESONIDE\FORMOTEROL FUMARATE DIHYDRATE
     Dosage: 160/4.5 MCG UNKNOWN FREQUENCY UNKNOWN
     Route: 055

REACTIONS (5)
  - Condition aggravated [Unknown]
  - Hypoacusis [Unknown]
  - Memory impairment [Unknown]
  - Inability to afford medication [Unknown]
  - Intentional product misuse [Unknown]
